FAERS Safety Report 10390025 (Version 1)
Quarter: 2014Q3

REPORT INFORMATION
  Report Type: Spontaneous
  Country: US (occurrence: US)
  Receive Date: 20140818
  Receipt Date: 20140818
  Transmission Date: 20150326
  Serious: Yes (Other)
  Sender: FDA-Public Use
  Company Number: US-BAYER-2014-120051

PATIENT
  Age: 57 Year
  Sex: Female

DRUGS (1)
  1. GADAVIST [Suspect]
     Active Substance: GADOBUTROL
     Indication: NUCLEAR MAGNETIC RESONANCE IMAGING BRAIN
     Dosage: 8.5 ML, ONCE
     Dates: start: 20140806, end: 20140806

REACTIONS (5)
  - Lip swelling [None]
  - Panic reaction [None]
  - Paraesthesia oral [None]
  - Hypoaesthesia oral [None]
  - Sneezing [None]

NARRATIVE: CASE EVENT DATE: 20140806
